FAERS Safety Report 5029098-7 (Version None)
Quarter: 2006Q2

REPORT INFORMATION
  Report Type: 
  Country: None (occurrence: None)
  Receive Date: 20060613
  Receipt Date: 20060607
  Transmission Date: 20061013
  Serious: Yes (Death)
  Sender: FDA-Public Use
  Company Number: 2006-143583-NL

PATIENT
  Age: 59 Year
  Sex: Male

DRUGS (1)
  1. DANAPAROID SODIUM [Suspect]
     Indication: DISSEMINATED INTRAVASCULAR COAGULATION

REACTIONS (2)
  - CEREBRAL HAEMORRHAGE [None]
  - CEREBRAL INFARCTION [None]
